FAERS Safety Report 9425706 (Version 5)
Quarter: 2013Q3

REPORT INFORMATION
  Report Type: Spontaneous
  Country: US (occurrence: US)
  Receive Date: 20130729
  Receipt Date: 20130903
  Transmission Date: 20140515
  Serious: Yes (Death, Hospitalization, Other)
  Sender: FDA-Public Use
  Company Number: US-BAXTER-2013BAX029573

PATIENT
  Age: 74 Year
  Sex: Female

DRUGS (4)
  1. DIANEAL LOW CALCIUM [Suspect]
     Indication: PERITONEAL DIALYSIS
     Route: 033
     Dates: start: 2009
  2. DIANEAL LOW CALCIUM [Suspect]
     Indication: PERITONEAL DIALYSIS
     Route: 033
     Dates: start: 2009
  3. DIANEAL LOW CALCIUM (ULTRABAG) [Suspect]
     Indication: PERITONEAL DIALYSIS
     Route: 033
  4. TRANSDERM SCOP [Suspect]
     Indication: VOMITING
     Route: 062
     Dates: start: 201307, end: 201307

REACTIONS (12)
  - Death [Fatal]
  - Spinal column stenosis [Recovering/Resolving]
  - Nerve injury [Not Recovered/Not Resolved]
  - Blood pressure fluctuation [Not Recovered/Not Resolved]
  - Loss of consciousness [Not Recovered/Not Resolved]
  - Multimorbidity [Unknown]
  - Vomiting [Recovering/Resolving]
  - Hallucination [Recovered/Resolved]
  - Anuria [Recovering/Resolving]
  - Hypophagia [Unknown]
  - Therapy cessation [Unknown]
  - Dehydration [Unknown]
